FAERS Safety Report 8073708-7 (Version None)
Quarter: 2012Q1

REPORT INFORMATION
  Report Type: 
  Country: None (occurrence: None)
  Receive Date: 20120126
  Receipt Date: 20120117
  Transmission Date: 20120608
  Serious: Yes (Life-Threatening)
  Sender: FDA-Public Use
  Company Number: FR-MERCK-1201USA02687

PATIENT
  Age: 50 Year
  Sex: Female

DRUGS (15)
  1. ATROVENT [Concomitant]
     Route: 065
  2. INVANZ [Suspect]
     Indication: INFECTION
     Route: 065
     Dates: start: 20111110, end: 20111114
  3. LASIX [Concomitant]
     Route: 065
  4. EPREX [Suspect]
     Indication: ANAEMIA
     Route: 065
     Dates: start: 20111024
  5. PROGRAF [Suspect]
     Indication: IMMUNOSUPPRESSION
     Route: 065
     Dates: start: 20111107, end: 20111116
  6. CYCLOSPORINE [Suspect]
     Indication: IMMUNOSUPPRESSION
     Route: 042
     Dates: start: 20111024, end: 20111109
  7. MYCOPHENOLATE MOFETIL (CELLCEPT) [Suspect]
     Indication: IMMUNOSUPPRESSION
     Route: 065
     Dates: start: 20111024
  8. CORTANCYL [Concomitant]
     Route: 065
  9. FOLINORAL [Concomitant]
     Route: 065
  10. VFEND [Suspect]
     Indication: IMMUNOSUPPRESSION
     Route: 065
     Dates: start: 20111024
  11. UMULINE RAPIDE [Concomitant]
     Route: 065
  12. NEXIUM [Concomitant]
     Route: 065
  13. VALACYCLOVIR HYDROCHLORIDE [Concomitant]
     Route: 065
  14. ACETAMINOPHEN [Concomitant]
     Route: 065
  15. BRICANYL [Concomitant]
     Route: 065

REACTIONS (2)
  - POSTERIOR REVERSIBLE ENCEPHALOPATHY SYNDROME [None]
  - CONVULSION [None]
